FAERS Safety Report 9076942 (Version 1)
Quarter: 2013Q1

REPORT INFORMATION
  Report Type: Report from Study
  Country: US (occurrence: US)
  Receive Date: 20130129
  Receipt Date: 20130129
  Transmission Date: 20140127
  Serious: No
  Sender: FDA-Public Use
  Company Number: US-ABBOTT-12P-163-0944489-00

PATIENT
  Age: 52 Year
  Sex: Female

DRUGS (7)
  1. HUMIRA 40 MG/0.8 ML PEN [Suspect]
     Indication: CROHN^S DISEASE
     Route: 058
     Dates: start: 20120420
  2. METFORMIN [Concomitant]
     Indication: DIABETES MELLITUS
  3. GLIMEPIRIDE [Concomitant]
     Indication: DIABETES MELLITUS
  4. LEXAPRO [Concomitant]
     Indication: DEPRESSION
  5. CENTRUM [Concomitant]
     Indication: VITAMIN SUPPLEMENTATION
  6. VITAMIN D3 [Concomitant]
     Indication: PRODUCT USED FOR UNKNOWN INDICATION
     Dosage: 100MG DAILY
  7. ALLEGRA [Concomitant]
     Indication: SEASONAL ALLERGY

REACTIONS (1)
  - Diarrhoea [Recovering/Resolving]
